FAERS Safety Report 4709255-7 (Version None)
Quarter: 2005Q3

REPORT INFORMATION
  Report Type: 
  Country: None (occurrence: None)
  Receive Date: 20050705
  Receipt Date: 20050622
  Transmission Date: 20060218
  Serious: Yes (Hospitalization)
  Sender: FDA-Public Use
  Company Number: 2005091612

PATIENT
  Age: 75 Year
  Sex: Female
  Weight: 49.8957 kg

DRUGS (4)
  1. NICOTROL [Suspect]
     Indication: SMOKING CESSATION THERAPY
     Dosage: 1 15MG PATCH  QD, TRANSDERMAL
     Route: 062
     Dates: start: 20050526, end: 20050605
  2. RISEDRONATE SODIUM (RISEDRONATE SODIUM) [Concomitant]
  3. ATENOLOL [Concomitant]
  4. LOVASTATIN [Concomitant]

REACTIONS (3)
  - APPLICATION SITE ERYTHEMA [None]
  - APPLICATION SITE PRURITUS [None]
  - PNEUMONIA [None]
